FAERS Safety Report 4333412-5 (Version None)
Quarter: 2004Q1

REPORT INFORMATION
  Report Type: 
  Country: None (occurrence: None)
  Receive Date: 20040329
  Receipt Date: 20040226
  Transmission Date: 20041129
  Serious: No
  Sender: FDA-Public Use
  Company Number: 04P-163-0251493-00

PATIENT
  Age: 57 Year
  Sex: Female

DRUGS (4)
  1. HUMIRA [Suspect]
     Indication: PSORIATIC ARTHROPATHY
     Dosage: 40 MG, 1 IN 14 D, SUBCUTANEOUS
     Route: 058
     Dates: start: 20030101
  2. SERTRALINE HYDROCHLORIDE [Concomitant]
  3. CUTAR CREAM [Concomitant]
  4. CLOBETASOL PROPIONATE [Concomitant]

REACTIONS (1)
  - PSORIASIS [None]
